FAERS Safety Report 18505757 (Version 1)
Quarter: 2020Q4

REPORT INFORMATION
  Report Type: Spontaneous
  Country: US (occurrence: US)
  Receive Date: 20201116
  Receipt Date: 20201116
  Transmission Date: 20210114
  Serious: Yes (Other)
  Sender: FDA-Public Use
  Company Number: US-AMGEN-USASP2020182710

PATIENT
  Age: 56 Year
  Sex: Female

DRUGS (1)
  1. ARANESP [Suspect]
     Active Substance: DARBEPOETIN ALFA
     Indication: RED BLOOD CELL COUNT DECREASED
     Dosage: 200 MICROGRAM, Q3WK
     Route: 058
     Dates: start: 20200827

REACTIONS (2)
  - Neoplasm progression [Unknown]
  - Tumour marker increased [Unknown]

NARRATIVE: CASE EVENT DATE: 2020
